FAERS Safety Report 4381514-X (Version None)
Quarter: 2004Q2

REPORT INFORMATION
  Report Type: 
  Country: None (occurrence: None)
  Receive Date: 20040621
  Receipt Date: 20040603
  Transmission Date: 20050107
  Serious: Yes (Hospitalization)
  Sender: FDA-Public Use
  Company Number: AU-GLAXOSMITHKLINE-B0303423C

PATIENT
  Age: 82 Year
  Sex: Male

DRUGS (6)
  1. FLUTICASONE PROPIONATE [Suspect]
     Indication: CHRONIC OBSTRUCTIVE AIRWAYS DISEASE
     Dosage: 500MCG TWICE PER DAY
     Route: 055
     Dates: start: 20010606, end: 20040530
  2. VENTOLIN [Concomitant]
     Indication: CHRONIC OBSTRUCTIVE AIRWAYS DISEASE
     Dosage: 200MCG AS REQUIRED
     Route: 055
     Dates: start: 20010523
  3. PARIET [Concomitant]
     Indication: CHEST DISCOMFORT
     Dosage: 20MG PER DAY
     Route: 048
     Dates: start: 20030604
  4. MESASAL [Concomitant]
     Indication: NAUSEA
     Dates: start: 20031212, end: 20040428
  5. FLU VACCINE [Concomitant]
     Indication: INFLUENZA IMMUNISATION
     Dates: start: 20040316, end: 20040316
  6. PNEUMONIA VACCINE [Concomitant]
     Indication: INFECTION PROPHYLAXIS
     Dates: start: 20040413, end: 20040413

REACTIONS (12)
  - ATRIAL FIBRILLATION [None]
  - CHEST DISCOMFORT [None]
  - CHEST PAIN [None]
  - CREPITATIONS [None]
  - DYSPNOEA EXACERBATED [None]
  - EJECTION FRACTION DECREASED [None]
  - GENERAL PHYSICAL HEALTH DETERIORATION [None]
  - HYPOXIA [None]
  - MYOCARDIAL INFARCTION [None]
  - RENAL IMPAIRMENT [None]
  - VENTRICULAR HYPOKINESIA [None]
  - WHITE BLOOD CELL COUNT INCREASED [None]
